FAERS Safety Report 9305583 (Version 1)
Quarter: 2013Q2

REPORT INFORMATION
  Report Type: Spontaneous
  Country: FR (occurrence: FR)
  Receive Date: 20130523
  Receipt Date: 20130523
  Transmission Date: 20140414
  Serious: Yes (Other)
  Sender: FDA-Public Use
  Company Number: FR-ROCHE-1227751

PATIENT
  Age: 66 Year
  Sex: Female

DRUGS (16)
  1. AVASTIN [Suspect]
     Indication: OVARIAN EPITHELIAL CANCER
     Route: 041
     Dates: end: 20130218
  2. CAELYX [Suspect]
     Indication: OVARIAN EPITHELIAL CANCER
     Route: 041
     Dates: start: 20130115, end: 20130218
  3. SOLUPRED (FRANCE) [Suspect]
     Indication: PRODUCT USED FOR UNKNOWN INDICATION
     Route: 048
  4. MONOCRIXO [Concomitant]
     Route: 065
  5. DAFALGAN [Concomitant]
     Route: 065
  6. MYOLASTAN [Concomitant]
     Route: 065
  7. LYSANXIA [Concomitant]
     Route: 065
  8. FUROSEMIDE [Concomitant]
     Route: 065
  9. EUPANTOL [Concomitant]
     Route: 065
  10. BECILAN [Concomitant]
     Route: 065
  11. ABUFENE [Concomitant]
     Route: 065
  12. INNOHEP [Concomitant]
     Route: 065
     Dates: start: 201212
  13. SYMBICORT [Concomitant]
     Route: 065
  14. SYMBICORT [Concomitant]
     Route: 065
  15. VENTOLINE [Concomitant]
     Route: 065
  16. CARBOPLATIN [Concomitant]
     Dosage: 3 SESSIONS
     Route: 065
     Dates: start: 201101, end: 201103

REACTIONS (1)
  - Pneumocystis jirovecii pneumonia [Recovering/Resolving]
